FAERS Safety Report 23694062 (Version 1)
Quarter: 2024Q2

REPORT INFORMATION
  Report Type: Spontaneous
  Country: US (occurrence: US)
  Receive Date: 20240401
  Receipt Date: 20240401
  Transmission Date: 20240716
  Serious: No
  Sender: FDA-Public Use
  Company Number: US-PERRIGO-23US012535

PATIENT
  Age: 73 Year
  Sex: Male
  Weight: 86.168 kg

DRUGS (8)
  1. ACETAMINOPHEN [Suspect]
     Active Substance: ACETAMINOPHEN
     Indication: Back pain
     Dosage: 650 MG, PRN
     Route: 048
     Dates: end: 202310
  2. ACETAMINOPHEN [Suspect]
     Active Substance: ACETAMINOPHEN
     Indication: Nephrolithiasis
     Dosage: 650 MG, SINGLE
     Route: 048
     Dates: start: 20231028, end: 20231028
  3. ACETAMINOPHEN [Suspect]
     Active Substance: ACETAMINOPHEN
     Dosage: 650 MG, TWICE
     Route: 048
     Dates: start: 20231030, end: 20231030
  4. ACETAMINOPHEN\HYDROCODONE [Concomitant]
     Active Substance: ACETAMINOPHEN\HYDROCODONE
     Indication: Pain
     Dosage: UNK
     Route: 065
  5. TOPIRAMATE [Concomitant]
     Active Substance: TOPIRAMATE
     Indication: Seizure
     Dosage: UNK
     Route: 065
     Dates: start: 2011
  6. ICY HOT [MENTHOL;METHYL SALICYLATE] [Concomitant]
     Indication: Pain
     Dosage: UNK
     Route: 065
     Dates: start: 202310
  7. LOSARTAN [Concomitant]
     Active Substance: LOSARTAN
     Indication: Hypertension
     Dosage: 25 MG, UNK
     Route: 065
     Dates: start: 2018
  8. ACETAMINOPHEN [Concomitant]
     Active Substance: ACETAMINOPHEN
     Indication: Pain
     Dosage: 500 MG, PRN
     Route: 065

REACTIONS (3)
  - Therapeutic product effect incomplete [Unknown]
  - Expired product administered [Recovered/Resolved]
  - Underdose [Recovered/Resolved]

NARRATIVE: CASE EVENT DATE: 20231030
